FAERS Safety Report 6541842-6 (Version None)
Quarter: 2010Q1

REPORT INFORMATION
  Report Type: 
  Country: None (occurrence: None)
  Receive Date: 20100119
  Receipt Date: 20100115
  Transmission Date: 20100710
  Serious: Yes (Death, Hospitalization)
  Sender: FDA-Public Use
  Company Number: PHHY2009IE52987

PATIENT
  Sex: Male

DRUGS (1)
  1. CLOZARIL [Suspect]
     Indication: SCHIZOPHRENIA
     Dosage: 850 MG, UNK
     Route: 048
     Dates: start: 19940901

REACTIONS (6)
  - BRAIN DEATH [None]
  - MALAISE [None]
  - MENINGITIS [None]
  - MULTI-ORGAN FAILURE [None]
  - SALMONELLOSIS [None]
  - SEPSIS [None]
